FAERS Safety Report 21715532 (Version 1)
Quarter: 2022Q4

REPORT INFORMATION
  Report Type: Spontaneous
  Country: US (occurrence: None)
  Receive Date: 20221211
  Receipt Date: 20221211
  Transmission Date: 20230112
  Serious: Yes (Death)
  Sender: FDA-Public Use
  Company Number: None

PATIENT
  Age: 62 Year
  Sex: Male
  Weight: 99 kg

DRUGS (1)
  1. PHILLIPS ORIGINAL MILK OF MAGNESIA [Suspect]
     Active Substance: MAGNESIUM HYDROXIDE
     Indication: Illness
     Dosage: OTHER QUANTITY : 1 OUNCE(S);?FREQUENCY : EVERY 4 HOURS;?
     Route: 048
     Dates: start: 20221204, end: 20221205

REACTIONS (2)
  - Incorrect dose administered [None]
  - Incorrect route of product administration [None]

NARRATIVE: CASE EVENT DATE: 20221205
